FAERS Safety Report 11594041 (Version 1)
Quarter: 2015Q4

REPORT INFORMATION
  Report Type: Spontaneous
  Country: US (occurrence: US)
  Receive Date: 20151005
  Receipt Date: 20151005
  Transmission Date: 20160304
  Serious: No
  Sender: FDA-Public Use
  Company Number: US-PERRIGO-14US005986

PATIENT
  Age: 44 Year
  Sex: Female
  Weight: 70.3 kg

DRUGS (2)
  1. DOXYLAMINE SUCCINATE 25 MG 441 [Suspect]
     Active Substance: DOXYLAMINE SUCCINATE
     Indication: INSOMNIA
     Dosage: 50 MG, QD AT BEDTIME
     Route: 048
     Dates: start: 2009, end: 20140608
  2. DOXYLAMINE SUCCINATE 25 MG 441 [Suspect]
     Active Substance: DOXYLAMINE SUCCINATE
     Dosage: 25 MG, QD AT BEDTIME
     Route: 048
     Dates: start: 2013

REACTIONS (8)
  - Insomnia [Recovered/Resolved]
  - Vomiting [Recovered/Resolved]
  - Asthenia [Recovering/Resolving]
  - Nervousness [Recovered/Resolved]
  - Dizziness [Recovering/Resolving]
  - Incorrect dose administered [Recovered/Resolved]
  - Abdominal discomfort [Recovering/Resolving]
  - Incorrect drug administration duration [Recovered/Resolved]

NARRATIVE: CASE EVENT DATE: 2009
